FAERS Safety Report 7943553-9 (Version None)
Quarter: 2011Q4

REPORT INFORMATION
  Report Type: 
  Country: None (occurrence: None)
  Receive Date: 20111128
  Receipt Date: 20111117
  Transmission Date: 20120403
  Serious: Yes (Other)
  Sender: FDA-Public Use
  Company Number: GB-JNJFOC-20111109763

PATIENT
  Age: 90 Year
  Sex: Male

DRUGS (11)
  1. ACETYLSALICYLIC ACID SRT [Concomitant]
  2. CODEINE SULFATE [Concomitant]
  3. LANSOPRAZOLE [Concomitant]
  4. LATANOPROST [Concomitant]
  5. PREDNISOLONE [Concomitant]
  6. ADCAL [Concomitant]
  7. LISINOPRIL [Concomitant]
  8. ACETAMINOPHEN [Concomitant]
  9. XARELTO [Suspect]
     Indication: KNEE ARTHROPLASTY
     Route: 048
     Dates: start: 20111029, end: 20111109
  10. FINASTERIDE [Concomitant]
  11. METFORMIN HCL [Concomitant]

REACTIONS (1)
  - THROMBOCYTOSIS [None]
